FAERS Safety Report 6631304-X (Version None)
Quarter: 2010Q1

REPORT INFORMATION
  Report Type: 
  Country: None (occurrence: None)
  Receive Date: 20100312
  Receipt Date: 20100226
  Transmission Date: 20100710
  Serious: Yes (Other)
  Sender: FDA-Public Use
  Company Number: IN-RANBAXY-2010RR-30868

PATIENT
  Age: 19 Year
  Sex: Female

DRUGS (4)
  1. AMLODIPINE [Suspect]
     Indication: HYPERTENSION
     Dosage: 5 MG, UNK
  2. TACROLIMUS [Suspect]
     Indication: IMMUNOSUPPRESSION
     Dosage: 9 MG, UNK
  3. TACROLIMUS [Suspect]
     Dosage: 7 MG, UNK
  4. METOPROLOL [Concomitant]
     Indication: HYPERTENSION

REACTIONS (3)
  - BREAST PAIN [None]
  - DRUG INTERACTION [None]
  - GALACTORRHOEA [None]
